FAERS Safety Report 7360972-2 (Version None)
Quarter: 2011Q1

REPORT INFORMATION
  Report Type: 
  Country: None (occurrence: None)
  Receive Date: 20110315
  Receipt Date: 20110315
  Transmission Date: 20110831
  Serious: Yes (Other)
  Sender: FDA-Public Use
  Company Number: None

PATIENT
  Age: 67 Year
  Sex: Female
  Weight: 86.9 kg

DRUGS (2)
  1. HIZENTRA [Suspect]
     Indication: IMMUNODEFICIENCY COMMON VARIABLE
     Dosage: 8 GRAMS WEEKLY SQ
     Route: 058
     Dates: start: 20100801
  2. HIZENTRA [Suspect]
     Indication: IMMUNODEFICIENCY COMMON VARIABLE
     Dosage: 2 GRAMS WEEKLY SQ
     Route: 058
     Dates: start: 20100801

REACTIONS (6)
  - DIARRHOEA [None]
  - INFUSION SITE ERYTHEMA [None]
  - INFUSION SITE SWELLING [None]
  - INFUSION SITE PAIN [None]
  - VOMITING [None]
  - INFUSION SITE HAEMATOMA [None]
